FAERS Safety Report 9058654 (Version 1)
Quarter: 2013Q1

REPORT INFORMATION
  Report Type: Spontaneous
  Country: US (occurrence: US)
  Receive Date: 20130204
  Receipt Date: 20130204
  Transmission Date: 20140127
  Serious: No
  Sender: FDA-Public Use
  Company Number: US-GLAXOSMITHKLINE-A0998626A

PATIENT
  Age: 54 Year
  Sex: Female

DRUGS (9)
  1. HORIZANT [Suspect]
     Indication: RESTLESS LEGS SYNDROME
     Dosage: 600MG PER DAY
     Route: 048
     Dates: start: 201203
  2. VITAMIN C [Concomitant]
  3. CENTRUM SILVER [Concomitant]
  4. GLUCOSAMINE [Concomitant]
  5. BABY ASPIRIN [Concomitant]
  6. CALCIUM [Concomitant]
  7. LOVAZA [Concomitant]
  8. UNSPECIFIED MEDICATION [Concomitant]
  9. UNSPECIFIED [Concomitant]

REACTIONS (2)
  - Insomnia [Unknown]
  - Therapeutic response unexpected [Unknown]
